FAERS Safety Report 23995531 (Version 2)
Quarter: 2024Q2

REPORT INFORMATION
  Report Type: Report from Study
  Country: US (occurrence: US)
  Receive Date: 20240620
  Receipt Date: 20240626
  Transmission Date: 20240716
  Serious: Yes (Hospitalization, Other)
  Sender: FDA-Public Use
  Company Number: US-MYLANLABS-2024M1055544

PATIENT
  Sex: Male

DRUGS (2)
  1. CLOZAPINE [Suspect]
     Active Substance: CLOZAPINE
     Indication: Product used for unknown indication
     Dosage: 100 MILLIGRAM, (ONCE A DAY)
     Route: 065
  2. MIRTAZAPINE [Concomitant]
     Active Substance: MIRTAZAPINE
     Dosage: 2 DOSAGE FORM, QD (2 TABS AT BEDTIME)
     Route: 065

REACTIONS (3)
  - Hospitalisation [Unknown]
  - Failure to thrive [Unknown]
  - Treatment noncompliance [Unknown]
